FAERS Safety Report 18074326 (Version 1)
Quarter: 2020Q3

REPORT INFORMATION
  Report Type: Spontaneous
  Country: US (occurrence: US)
  Receive Date: 20200727
  Receipt Date: 20200727
  Transmission Date: 20201103
  Serious: Yes (Other)
  Sender: FDA-Public Use
  Company Number: US-FRESENIUS KABI-FK202007609

PATIENT
  Age: 12 Day
  Sex: Male

DRUGS (5)
  1. HEPARIN (MANUFACTURER UNKNOWN) [Suspect]
     Active Substance: HEPARIN SODIUM
     Dosage: INCREASED TO A MAXIMUM OF 33.6 UNITS/KG/HOUR
     Route: 065
  2. HEPARIN (MANUFACTURER UNKNOWN) [Suspect]
     Active Substance: HEPARIN SODIUM
     Indication: AORTIC THROMBOSIS
     Dosage: 10 UNITS/KG/HR
     Route: 065
  3. ALTEPLASE. [Suspect]
     Active Substance: ALTEPLASE
     Indication: AORTIC THROMBOSIS
     Route: 065
  4. ALTEPLASE. [Suspect]
     Active Substance: ALTEPLASE
     Route: 065
  5. ALTEPLASE. [Suspect]
     Active Substance: ALTEPLASE
     Route: 065

REACTIONS (6)
  - Intraventricular haemorrhage neonatal [Unknown]
  - Necrotising colitis [Unknown]
  - Pulmonary haemorrhage [Unknown]
  - Renal failure [Unknown]
  - Haemorrhage [Unknown]
  - Therapeutic product effect decreased [Unknown]
